FAERS Safety Report 6908110-1 (Version None)
Quarter: 2010Q3

REPORT INFORMATION
  Report Type: 
  Country: None (occurrence: None)
  Receive Date: 20100805
  Receipt Date: 20100802
  Transmission Date: 20110219
  Serious: Yes (Hospitalization)
  Sender: FDA-Public Use
  Company Number: US-SHIRE-ALL1-2010-04100

PATIENT

DRUGS (9)
  1. FOSRENOL [Suspect]
     Indication: HYPERPHOSPHATAEMIA
     Dosage: 500 MG TABLET AFTER MEALS
     Route: 048
  2. FOSRENOL [Suspect]
     Indication: PROPHYLAXIS
  3. DEPAKOTE [Concomitant]
     Indication: BIPOLAR DISORDER
     Dosage: UNK, UNKNOWN
     Route: 048
     Dates: start: 19800101
  4. KLONOPIN [Concomitant]
     Indication: BIPOLAR DISORDER
     Dosage: UNK, UNKNOWN
     Route: 048
     Dates: start: 19800101
  5. SINGULAIR [Concomitant]
     Indication: ASTHMA
     Dosage: UNK, UNKNOWN
     Route: 048
  6. SEROQUEL [Concomitant]
     Indication: INSOMNIA
     Dosage: UNK, UNKNOWN
     Route: 048
  7. NEXIUM [Concomitant]
     Indication: DYSPEPSIA
     Dosage: UNK, UNKNOWN
     Route: 048
  8. MIDRIN                             /00450801/ [Concomitant]
     Indication: DIALYSIS
     Dosage: UNK, UNKNOWN
     Route: 048
  9. CRAG [Concomitant]
     Indication: VITAMIN SUPPLEMENTATION
     Dosage: UNK MG, UNKNOWN
     Route: 065

REACTIONS (1)
  - HOSPITALISATION [None]
